FAERS Safety Report 12551850 (Version 2)
Quarter: 2016Q3

REPORT INFORMATION
  Report Type: Spontaneous
  Country: US (occurrence: US)
  Receive Date: 20160713
  Receipt Date: 20160713
  Transmission Date: 20161109
  Serious: Yes (Other)
  Sender: FDA-Public Use
  Company Number: US-CIPLA-2014US00711

PATIENT

DRUGS (1)
  1. TERBINAFINE. [Suspect]
     Active Substance: TERBINAFINE
     Indication: ONYCHOMYCOSIS
     Dosage: 250 MG, ONCE DAILY
     Route: 048

REACTIONS (6)
  - Thrombocytopenia [Unknown]
  - Confusional state [Unknown]
  - Hepatic cirrhosis [Unknown]
  - Hepatic cyst [Unknown]
  - Autoimmune hepatitis [Recovering/Resolving]
  - Portal hypertension [Unknown]
